FAERS Safety Report 18728321 (Version 5)
Quarter: 2021Q3

REPORT INFORMATION
  Report Type: Report from Study
  Country: None (occurrence: CO)
  Receive Date: 20210111
  Receipt Date: 20210719
  Transmission Date: 20211014
  Serious: Yes (Hospitalization, Other)
  Sender: FDA-Public Use
  Company Number: CO-ABBVIE-20K-036-3618017-00

PATIENT
  Age: 60 Year
  Sex: Male
  Weight: 71 kg

DRUGS (8)
  1. HUMIRA [Suspect]
     Active Substance: ADALIMUMAB
     Indication: ANKYLOSING SPONDYLITIS
     Route: 058
     Dates: end: 20210610
  2. NAPROXEN. [Concomitant]
     Active Substance: NAPROXEN
     Indication: BACK PAIN
  3. CALCITRIOL. [Concomitant]
     Active Substance: CALCITRIOL
     Indication: ANKYLOSING SPONDYLITIS
     Route: 048
     Dates: start: 2012
  4. HYOSCINE [Concomitant]
     Active Substance: SCOPOLAMINE
     Indication: PRODUCT USED FOR UNKNOWN INDICATION
  5. HUMIRA [Suspect]
     Active Substance: ADALIMUMAB
     Indication: ANKYLOSING SPONDYLITIS
     Route: 058
     Dates: start: 20120322
  6. METHOTREXATE. [Concomitant]
     Active Substance: METHOTREXATE
     Indication: ANKYLOSING SPONDYLITIS
     Route: 048
     Dates: start: 2012
  7. ACETAMINOPHEN. [Concomitant]
     Active Substance: ACETAMINOPHEN
     Indication: ANKYLOSING SPONDYLITIS
     Route: 048
     Dates: start: 2012
  8. BUSCAPINA [Concomitant]
     Indication: PRODUCT USED FOR UNKNOWN INDICATION

REACTIONS (30)
  - Gastric disorder [Recovering/Resolving]
  - Rheumatoid arthritis [Not Recovered/Not Resolved]
  - Irritable bowel syndrome [Recovering/Resolving]
  - Prostatic disorder [Recovering/Resolving]
  - Oropharyngeal pain [Recovering/Resolving]
  - Gastritis [Recovering/Resolving]
  - Nephrolithiasis [Recovered/Resolved]
  - Immune system disorder [Recovering/Resolving]
  - Immunosuppression [Recovering/Resolving]
  - Nephrolithiasis [Recovered/Resolved]
  - Hypoaesthesia [Not Recovered/Not Resolved]
  - Intentional product misuse [Unknown]
  - Amnesia [Not Recovered/Not Resolved]
  - Calculus bladder [Recovering/Resolving]
  - Insomnia [Not Recovered/Not Resolved]
  - Nephrolithiasis [Not Recovered/Not Resolved]
  - Musculoskeletal discomfort [Not Recovered/Not Resolved]
  - Ankylosing spondylitis [Recovered/Resolved]
  - Ankylosing spondylitis [Recovering/Resolving]
  - Hypothyroidism [Recovering/Resolving]
  - Gastrointestinal disorder [Recovering/Resolving]
  - Muscle rigidity [Not Recovered/Not Resolved]
  - Muscle tightness [Recovering/Resolving]
  - Adverse food reaction [Unknown]
  - Influenza [Recovering/Resolving]
  - Cholelithiasis [Recovering/Resolving]
  - General physical condition abnormal [Unknown]
  - Benign prostatic hyperplasia [Not Recovered/Not Resolved]
  - Stress [Not Recovered/Not Resolved]
  - Pain [Recovering/Resolving]

NARRATIVE: CASE EVENT DATE: 2018
